FAERS Safety Report 5933709-9 (Version None)
Quarter: 2008Q4

REPORT INFORMATION
  Report Type: 
  Country: None (occurrence: None)
  Receive Date: 20081029
  Receipt Date: 20081023
  Transmission Date: 20090506
  Serious: Yes (Death, Other)
  Sender: FDA-Public Use
  Company Number: DE-JNJFOC-20081005971

PATIENT
  Age: 8 Decade
  Sex: Male

DRUGS (2)
  1. REOPRO [Suspect]
     Route: 042
  2. REOPRO [Suspect]
     Indication: MYOCARDIAL INFARCTION
     Route: 042

REACTIONS (2)
  - LEFT VENTRICULAR DYSFUNCTION [None]
  - VASCULAR BYPASS DYSFUNCTION [None]
